FAERS Safety Report 12781076 (Version 1)
Quarter: 2016Q3

REPORT INFORMATION
  Report Type: Report from Study
  Country: RO (occurrence: RO)
  Receive Date: 20160926
  Receipt Date: 20160926
  Transmission Date: 20161109
  Serious: Yes (Other)
  Sender: FDA-Public Use
  Company Number: RO-BAUSCH-BL-2016-023642

PATIENT
  Age: 58 Year
  Sex: Male

DRUGS (2)
  1. PEGINTERFERON ALFA 2B [Suspect]
     Active Substance: PEGINTERFERON ALFA-2B
     Indication: CHRONIC HEPATITIS C
     Route: 065
  2. RIBAVIRIN. [Suspect]
     Active Substance: RIBAVIRIN
     Indication: CHRONIC HEPATITIS C
     Route: 065

REACTIONS (1)
  - Immune thrombocytopenic purpura [Recovered/Resolved]
